FAERS Safety Report 20423069 (Version 4)
Quarter: 2022Q1

REPORT INFORMATION
  Report Type: Report from Study
  Country: IL (occurrence: IL)
  Receive Date: 20220203
  Receipt Date: 20220228
  Transmission Date: 20220423
  Serious: Yes (Hospitalization)
  Sender: FDA-Public Use
  Company Number: IL-KARYOPHARM THERAPEUTICS, INC.-2022KPT000080

PATIENT
  Age: 35 Year
  Sex: Female
  Weight: 55 kg

DRUGS (4)
  1. SELINEXOR [Suspect]
     Active Substance: SELINEXOR
     Indication: Hepatocellular carcinoma
     Dosage: 40 MG, WEEKLY
     Route: 048
     Dates: start: 20220102
  2. TAMIFLU [Concomitant]
     Active Substance: OSELTAMIVIR PHOSPHATE
     Dosage: 150 MG, QD
     Route: 048
     Dates: start: 20220104
  3. FENTANYL TRANSDERMAL SYSTEM [Concomitant]
     Active Substance: FENTANYL
     Dosage: 12 MCG/H, 3X/WEEK
     Route: 058
     Dates: start: 2018
  4. OXYCOD [OXYCODONE HYDROCHLORIDE] [Concomitant]
     Dosage: 20 MG, PRN
     Route: 048
     Dates: start: 202111

REACTIONS (1)
  - Gastrointestinal haemorrhage [Recovered/Resolved]

NARRATIVE: CASE EVENT DATE: 20220119
